FAERS Safety Report 13570924 (Version 1)
Quarter: 2017Q2

REPORT INFORMATION
  Report Type: Spontaneous
  Country: US (occurrence: US)
  Receive Date: 20170522
  Receipt Date: 20170522
  Transmission Date: 20170830
  Serious: Yes (Death)
  Sender: FDA-Public Use
  Company Number: None

PATIENT
  Age: 27 Year
  Sex: Male
  Weight: 132.7 kg

DRUGS (1)
  1. LOPERAMIDE [Suspect]
     Active Substance: LOPERAMIDE
     Indication: EUPHORIC MOOD
     Dosage: ?          OTHER FREQUENCY:UNKNOWN;?
     Route: 048
     Dates: start: 20160701, end: 20170124

REACTIONS (4)
  - Sudden death [None]
  - Seizure [None]
  - Respiratory distress [None]
  - Arrhythmia [None]

NARRATIVE: CASE EVENT DATE: 20170124
